FAERS Safety Report 7712003-X (Version None)
Quarter: 2011Q3

REPORT INFORMATION
  Report Type: 
  Country: None (occurrence: None)
  Receive Date: 20110826
  Receipt Date: 20110822
  Transmission Date: 20111222
  Serious: Yes (Hospitalization)
  Sender: FDA-Public Use
  Company Number: DE-PFIZER INC-2011197740

PATIENT
  Sex: Male

DRUGS (1)
  1. PANTOPRAZOLE [Suspect]
     Indication: GASTRIC HAEMORRHAGE
     Route: 041

REACTIONS (3)
  - INFLAMMATION [None]
  - HAEMATOMA [None]
  - ABSCESS DRAINAGE [None]
